FAERS Safety Report 5846315-1 (Version None)
Quarter: 2008Q3

REPORT INFORMATION
  Report Type: 
  Country: None (occurrence: None)
  Receive Date: 20080815
  Receipt Date: 20080722
  Transmission Date: 20090109
  Serious: No
  Sender: FDA-Public Use
  Company Number: US-BAYER-200829656NA

PATIENT
  Age: 52 Year
  Sex: Female
  Weight: 64 kg

DRUGS (3)
  1. MAGNEVIST [Suspect]
     Indication: NUCLEAR MAGNETIC RESONANCE IMAGING
     Route: 042
     Dates: start: 20080716, end: 20080716
  2. ANTIDEPRESSANT [Concomitant]
  3. MEDS FOR OSTEOPOROSIS [Concomitant]
     Indication: OSTEOPOROSIS

REACTIONS (2)
  - PRURITUS [None]
  - URTICARIA [None]
